FAERS Safety Report 9616657 (Version 2)
Quarter: 2013Q4

REPORT INFORMATION
  Report Type: Spontaneous
  Country: AT (occurrence: AT)
  Receive Date: 20131011
  Receipt Date: 20131120
  Transmission Date: 20140711
  Serious: Yes (Hospitalization, Other)
  Sender: FDA-Public Use
  Company Number: PHHY2013AT112617

PATIENT
  Sex: Female

DRUGS (1)
  1. GILENYA [Suspect]
     Indication: MULTIPLE SCLEROSIS
     Route: 048
     Dates: start: 201111

REACTIONS (7)
  - Speech disorder [Recovering/Resolving]
  - Dysarthria [Recovering/Resolving]
  - Sensorimotor disorder [Recovering/Resolving]
  - Central nervous system lesion [Unknown]
  - B-lymphocyte count decreased [Unknown]
  - CD4/CD8 ratio decreased [Unknown]
  - CD4 lymphocytes decreased [Unknown]
